FAERS Safety Report 6557204-1 (Version None)
Quarter: 2010Q1

REPORT INFORMATION
  Report Type: 
  Country: None (occurrence: None)
  Receive Date: 20100127
  Receipt Date: 20100127
  Transmission Date: 20100710
  Serious: No
  Sender: FDA-Public Use
  Company Number: None

PATIENT
  Age: 87 Year
  Sex: Female
  Weight: 68.0396 kg

DRUGS (2)
  1. NORVASC [Suspect]
     Dosage: ONCE DAILY PO
     Route: 048
  2. VESICARE [Suspect]
     Dosage: ONCE DAILY PO
     Route: 048

REACTIONS (4)
  - DENTURE WEARER [None]
  - DRY MOUTH [None]
  - QUALITY OF LIFE DECREASED [None]
  - TOOTH FRACTURE [None]
